FAERS Safety Report 8604923-9 (Version None)
Quarter: 2012Q3

REPORT INFORMATION
  Report Type: 
  Country: None (occurrence: None)
  Receive Date: 20120820
  Receipt Date: 20120814
  Transmission Date: 20120928
  Serious: Yes (Life-Threatening, Hospitalization)
  Sender: FDA-Public Use
  Company Number: FR-ASTRAZENECA-2012SE57227

PATIENT
  Sex: Female

DRUGS (9)
  1. ASPIRIN [Concomitant]
  2. BISOPROLOL FUMARATE [Concomitant]
  3. ALLOPURINOL [Suspect]
     Indication: GOUT
     Route: 048
     Dates: start: 20120712, end: 20120802
  4. LEVOTHYROXINE SODIUM [Concomitant]
  5. ENALAPRIL MALEATE AND HYDROCHLOROTHIAZIDE [Concomitant]
  6. HYPERIUM [Concomitant]
  7. NEXIUM [Suspect]
     Route: 048
     Dates: start: 20120622, end: 20120802
  8. NITROGLYCERIN [Concomitant]
  9. LASIX [Concomitant]

REACTIONS (1)
  - BONE MARROW FAILURE [None]
